FAERS Safety Report 4708245-8 (Version None)
Quarter: 2005Q3

REPORT INFORMATION
  Report Type: 
  Country: None (occurrence: None)
  Receive Date: 20050707
  Receipt Date: 20050623
  Transmission Date: 20060218
  Serious: Yes (Hospitalization)
  Sender: FDA-Public Use
  Company Number: US-JNJFOC-20050700598

PATIENT
  Sex: Female
  Weight: 63.5 kg

DRUGS (3)
  1. MOTRIN [Suspect]
  2. CELEBREX [Suspect]
     Route: 049
  3. GREEN TEA [Concomitant]
     Route: 049

REACTIONS (4)
  - CHROMATURIA [None]
  - DIVERTICULUM [None]
  - HYPOKALAEMIA [None]
  - JEJUNAL PERFORATION [None]
